FAERS Safety Report 4577841-3 (Version None)
Quarter: 2005Q1

REPORT INFORMATION
  Report Type: 
  Country: None (occurrence: None)
  Receive Date: 20050209
  Receipt Date: 20041213
  Transmission Date: 20050727
  Serious: Yes (Hospitalization, Other)
  Sender: FDA-Public Use
  Company Number: 2004-DE-06156BY

PATIENT
  Age: 74 Year
  Sex: Male

DRUGS (7)
  1. MICARDIS HCT [Suspect]
     Indication: HYPERTENSION
     Dosage: STRENGTH: 80/12,5MG (SEE TEXT)
     Route: 048
  2. SORTIS [Concomitant]
  3. AMLODIPINE [Concomitant]
  4. ASPIRIN [Concomitant]
  5. CLOPIDOGREL BISULFATE [Concomitant]
  6. METOPROLOL TARTRATE [Concomitant]
  7. DYAZIDE [Concomitant]

REACTIONS (4)
  - CIRCULATORY COLLAPSE [None]
  - CONVULSION [None]
  - HYPERSENSITIVITY [None]
  - URINARY INCONTINENCE [None]
